FAERS Safety Report 12304738 (Version 1)
Quarter: 2016Q2

REPORT INFORMATION
  Report Type: Spontaneous
  Country: US (occurrence: US)
  Receive Date: 20160426
  Receipt Date: 20160426
  Transmission Date: 20160815
  Serious: No
  Sender: FDA-Public Use
  Company Number: US-BAYER-2016-077294

PATIENT
  Age: 84 Year
  Sex: Male
  Weight: 79.37 kg

DRUGS (4)
  1. MIRALAX [Suspect]
     Active Substance: POLYETHYLENE GLYCOL 3350
     Indication: CONSTIPATION
     Dosage: UNK, PRN
     Route: 048
     Dates: start: 2015
  2. DONEPEZIL. [Concomitant]
     Active Substance: DONEPEZIL
  3. SIMVASTATIN. [Concomitant]
     Active Substance: SIMVASTATIN
  4. ST. JOSEPH ASPIRIN ADULT LOW DOSE [Concomitant]
     Active Substance: ASPIRIN

REACTIONS (3)
  - Product use issue [None]
  - Product use issue [None]
  - Circumstance or information capable of leading to medication error [None]

NARRATIVE: CASE EVENT DATE: 2015
